FAERS Safety Report 19674096 (Version 1)
Quarter: 2021Q3

REPORT INFORMATION
  Report Type: Spontaneous
  Country: US (occurrence: US)
  Receive Date: 20210809
  Receipt Date: 20210809
  Transmission Date: 20211014
  Serious: No
  Sender: FDA-Public Use
  Company Number: US-ROCHE-2643549

PATIENT
  Sex: Female
  Weight: 93.98 kg

DRUGS (3)
  1. PERJETA [Suspect]
     Active Substance: PERTUZUMAB
     Indication: CHEMOTHERAPY
     Dosage: ONGOING:YES
     Route: 042
     Dates: start: 20190918
  2. GABAPENTIN. [Concomitant]
     Active Substance: GABAPENTIN
     Route: 048
     Dates: start: 20190916
  3. HERCEPTIN [Suspect]
     Active Substance: TRASTUZUMAB
     Indication: CHEMOTHERAPY
     Route: 042
     Dates: start: 20190918

REACTIONS (3)
  - Tenderness [Unknown]
  - Breast pain [Unknown]
  - Burning sensation [Unknown]
